FAERS Safety Report 5909139-2 (Version None)
Quarter: 2008Q3

REPORT INFORMATION
  Report Type: 
  Country: None (occurrence: None)
  Receive Date: 20080929
  Receipt Date: 20080925
  Transmission Date: 20090109
  Serious: Yes (Other)
  Sender: FDA-Public Use
  Company Number: A0749399A

PATIENT
  Age: 85 Year
  Sex: Female

DRUGS (11)
  1. ASPIRIN [Suspect]
     Dosage: ORAL
     Route: 048
  2. CALCIUM CARBONATE + VITAMIN D CAPLET (CA CARBONATE + VITAMIN D) [Suspect]
     Dosage: ORAL
     Route: 048
  3. CALCIUM CARBONATE + VITAMIN D TABLET-CHEWABLE (CA CARBONATE + VITAMIN [Suspect]
     Dosage: ORAL
     Route: 048
  4. METFORMIN HCL [Concomitant]
  5. METHYLPHENIDATE HC1 [Concomitant]
  6. NORTRIPTYLINE HCL [Concomitant]
  7. LEVOTHYROXINE SODIUM [Concomitant]
  8. RAMIPRIL [Concomitant]
  9. METOPROLOL TARTRATE [Concomitant]
  10. LORAZEPAM [Concomitant]
  11. VITAMIN D [Concomitant]

REACTIONS (3)
  - HAEMORRHAGE [None]
  - MUSCULOSKELETAL DISORDER [None]
  - PETECHIAE [None]
